FAERS Safety Report 9170654 (Version 2)
Quarter: 2013Q1

REPORT INFORMATION
  Report Type: Spontaneous
  Country: US (occurrence: None)
  Receive Date: 20130308
  Receipt Date: 20130329
  Transmission Date: 20140127
  Serious: Yes (Other)
  Sender: FDA-Public Use
  Company Number: JPI-P-030311

PATIENT
  Age: 61 Year
  Sex: Female

DRUGS (22)
  1. XYREM (500 MILLIGRAM/MILLILITERS, SOLUTION) (SODIUM OXYBATE) [Suspect]
     Indication: FIBROMYALGIA
     Dosage: 4.5 GM (2.25 GM, 2 IN 1 D), ORAL
     Route: 048
     Dates: start: 20031111
  2. XYREM (500 MILLIGRAM/MILLILITERS, SOLUTION) (SODIUM OXYBATE) [Suspect]
     Indication: SLEEP DISORDER
     Dosage: 4.5 GM (2.25 GM, 2 IN 1 D), ORAL
     Route: 048
     Dates: start: 20031111
  3. XYREM (500 MILLIGRAM/MILLILITERS, SOLUTION) (SODIUM OXYBATE) [Suspect]
     Dosage: 4.5 GM (2.25 GM, 2 IN 1 D), ORAL
     Route: 048
     Dates: start: 20031111
  4. CHLORAL HYDRATE [Suspect]
     Dosage: UNKNOWN
  5. DIAZEPAM (TABLETS) [Concomitant]
  6. RAMELTEON (TABLETS) [Concomitant]
  7. CARVEDILOL (TABLETS) [Concomitant]
  8. OLMESARTAN MEDOXOMIL (TABLETS) [Concomitant]
  9. AMLODIPINE BESYLATE(TABLETS) [Concomitant]
  10. ATORVASTATIN CALCIUM(TABLETS) [Concomitant]
  11. LEVOTHYROXINE SODIUM(TABLETS) [Concomitant]
  12. IBANDRONATE SODIUM(TABLETS) [Concomitant]
  13. DOCUSATE SODIUM(CAPSULES) [Concomitant]
  14. PROBIOTIC [Concomitant]
  15. CICLOPIROX [Concomitant]
  16. CHROMIUM(TABLETS) [Concomitant]
  17. APAPW/CAFFEINE/BUTALBITA/CODEINE(CAPSULES) [Concomitant]
  18. GLUTATHIONE(TABLETS) [Concomitant]
  19. OMEGA-3 FATTY ACIDS(CAPSULES) [Concomitant]
  20. AMPHETAMINE - DEXTROAMPHETAMINE(TABLETS) [Concomitant]
  21. PSYLLIUM (POWDER) [Concomitant]
  22. SOLIFENACIN SUCCINATE (TABLETS) [Concomitant]

REACTIONS (2)
  - Paranoia [None]
  - Schizophrenia [None]
